FAERS Safety Report 18901883 (Version 1)
Quarter: 2021Q1

REPORT INFORMATION
  Report Type: Spontaneous
  Country: US (occurrence: US)
  Receive Date: 20210216
  Receipt Date: 20210216
  Transmission Date: 20210420
  Serious: Yes (Other)
  Sender: FDA-Public Use
  Company Number: US-ELI_LILLY_AND_COMPANY-US202102004412

PATIENT
  Sex: Male

DRUGS (1)
  1. HUMULIN R [Suspect]
     Active Substance: INSULIN HUMAN
     Indication: PRODUCT USED FOR UNKNOWN INDICATION
     Dosage: UNK UNK, UNKNOWN
     Route: 065
     Dates: start: 2015

REACTIONS (6)
  - Foot fracture [Unknown]
  - Post procedural infection [Recovered/Resolved]
  - Splenic thrombosis [Unknown]
  - Carpal tunnel syndrome [Unknown]
  - Joint injury [Unknown]
  - Neuropathic arthropathy [Unknown]
